FAERS Safety Report 14566741 (Version 1)
Quarter: 2018Q1

REPORT INFORMATION
  Report Type: Spontaneous
  Country: GB (occurrence: GB)
  Receive Date: 20180223
  Receipt Date: 20180223
  Transmission Date: 20180509
  Serious: Yes (Other)
  Sender: FDA-Public Use
  Company Number: GB-TEVA-2018-GB-854594

PATIENT
  Age: 68 Year
  Sex: Male

DRUGS (1)
  1. TEMAZEPAM 10 MG TABLETS [Suspect]
     Active Substance: TEMAZEPAM
     Indication: INSOMNIA
     Dosage: 20 MILLIGRAM DAILY; 20 MG, HS
     Route: 048
     Dates: start: 201709

REACTIONS (7)
  - Insomnia [Recovering/Resolving]
  - Claustrophobia [Recovering/Resolving]
  - Eating disorder [Recovering/Resolving]
  - Tinnitus [Recovering/Resolving]
  - Thinking abnormal [Recovering/Resolving]
  - Dependence [Recovering/Resolving]
  - Panic attack [Recovering/Resolving]

NARRATIVE: CASE EVENT DATE: 2017
